FAERS Safety Report 24660261 (Version 1)
Quarter: 2024Q4

REPORT INFORMATION
  Report Type: Spontaneous
  Country: US (occurrence: US)
  Receive Date: 20241125
  Receipt Date: 20241125
  Transmission Date: 20250115
  Serious: Yes (Other)
  Sender: BRISTOL-MYERS SQUIBB COMPANY
  Company Number: US-BRISTOL-MYERS SQUIBB COMPANY-2024-181585

PATIENT
  Age: 53 Year
  Sex: Female

DRUGS (1)
  1. AUGTYRO [Suspect]
     Active Substance: REPOTRECTINIB
     Indication: Product used for unknown indication
     Dosage: FREQUENCY: TWICE DAILY. ROUTE: PILL
     Dates: start: 202404

REACTIONS (4)
  - Lung cancer metastatic [Unknown]
  - Seizure [Unknown]
  - Loss of consciousness [Unknown]
  - Balance disorder [Unknown]
